FAERS Safety Report 7918577-8 (Version None)
Quarter: 2011Q4

REPORT INFORMATION
  Report Type: 
  Country: None (occurrence: None)
  Receive Date: 20111116
  Receipt Date: 20111116
  Transmission Date: 20120403
  Serious: Yes (Other)
  Sender: FDA-Public Use
  Company Number: TN-PFIZER INC-2011081092

PATIENT
  Age: 54 Year
  Sex: Male
  Weight: 84 kg

DRUGS (3)
  1. FLUCONAZOLE [Suspect]
     Indication: FUNGAL OESOPHAGITIS
     Dosage: 100 MG/DAY
     Route: 048
  2. FLUCONAZOLE [Interacting]
     Indication: ORAL FUNGAL INFECTION
  3. TACROLIMUS [Interacting]
     Indication: RENAL TRANSPLANT
     Dosage: 8 MG/DAY
     Route: 048

REACTIONS (3)
  - HYPERGLYCAEMIA [None]
  - DRUG INTERACTION [None]
  - BLOOD CREATININE INCREASED [None]
